FAERS Safety Report 16437747 (Version 1)
Quarter: 2019Q2

REPORT INFORMATION
  Report Type: Spontaneous
  Country: KR (occurrence: KR)
  Receive Date: 20190616
  Receipt Date: 20190616
  Transmission Date: 20190711
  Serious: Yes (Hospitalization)
  Sender: FDA-Public Use
  Company Number: KR-009507513-1906KOR003321

PATIENT
  Sex: Male

DRUGS (12)
  1. KEYTRUDA [Suspect]
     Active Substance: PEMBROLIZUMAB
     Indication: BLADDER CANCER
     Dosage: QUANTITY: 2 DAYS: 1
     Dates: start: 20190510
  2. TACENOL [Concomitant]
     Dosage: QUANTITY/DAYS:139, Q8H
     Route: 048
     Dates: start: 20190430, end: 20190512
  3. K-CONTIN [Concomitant]
     Dosage: QUANTITY/DAYS: 146
     Route: 048
     Dates: start: 20190503, end: 20190528
  4. DUPHALAC [Concomitant]
     Active Substance: LACTULOSE
     Dosage: QUANTITY/DAYS: 153
     Dates: start: 20190509, end: 20190528
  5. CARBOPLATIN. [Concomitant]
     Active Substance: CARBOPLATIN
     Dosage: UNK
     Dates: start: 20190421
  6. K-CONTIN [Concomitant]
     Dosage: QUANTITY: 2 DAYS 9
     Route: 048
     Dates: start: 20190507, end: 20190510
  7. GLYCERIN. [Concomitant]
     Active Substance: GLYCERIN
     Dosage: QUANTITY 1 DAYS 2
     Dates: start: 20190506, end: 20190512
  8. MOPRIDE [Concomitant]
     Dosage: QUANTITY/DAYS: 119
     Route: 048
     Dates: start: 20190504, end: 20190510
  9. HANMI TAMS [Concomitant]
     Dosage: QUANTITY/DAYS: 114
     Route: 048
     Dates: start: 20190430, end: 20190513
  10. CREON [Concomitant]
     Active Substance: PANCRELIPASE AMYLASE\PANCRELIPASE LIPASE\PANCRELIPASE PROTEASE
     Dosage: DETAILS/QUANTITY/DAYS: 40000162
     Route: 048
     Dates: start: 20190504, end: 20190524
  11. VANCOMYCIN HYDROCHLORIDE. [Concomitant]
     Active Substance: VANCOMYCIN HYDROCHLORIDE
     Dosage: QUANTITY/DAYS: V23
     Dates: start: 20190508, end: 20190510
  12. BCG LIVE [Suspect]
     Active Substance: BACILLUS CALMETTE-GUERIN SUBSTRAIN TICE LIVE ANTIGEN
     Indication: BLADDER CANCER
     Dosage: UNK
     Route: 043
     Dates: start: 20180709, end: 20180907

REACTIONS (2)
  - Product use in unapproved indication [Unknown]
  - Adverse event [Unknown]

NARRATIVE: CASE EVENT DATE: 201905
